FAERS Safety Report 8290254-6 (Version None)
Quarter: 2012Q2

REPORT INFORMATION
  Report Type: 
  Country: None (occurrence: None)
  Receive Date: 20120417
  Receipt Date: 20120404
  Transmission Date: 20120825
  Serious: Yes (Hospitalization)
  Sender: FDA-Public Use
  Company Number: CA-AMGEN-CANCT2012002334

PATIENT
  Age: 60 Year
  Sex: Female

DRUGS (15)
  1. CALCIUM CARBONATE [Concomitant]
     Dosage: 600 MG, QD
     Route: 048
     Dates: start: 20111102
  2. BLINDED DENOSUMAB [Suspect]
     Indication: BREAST CANCER
     Dosage: 120 MG, Q3WK
     Dates: start: 20111102
  3. NEUPOGEN [Suspect]
     Dosage: 300 MUG, UNK
     Route: 058
     Dates: start: 20120105, end: 20120111
  4. VITAMIN D [Concomitant]
     Dosage: 400 IU, QD
     Route: 048
     Dates: start: 20111102
  5. EPIRUBICIN [Concomitant]
     Dosage: UNK UNK, Q3WK
     Route: 042
     Dates: start: 20111102, end: 20111214
  6. PROCHLORPERAZINE [Concomitant]
     Dosage: 10 MG, PRN
     Dates: start: 20111103, end: 20120111
  7. BLINDED PLACEBO [Suspect]
     Indication: BREAST CANCER
     Dosage: 120 MG, Q3WK
     Dates: start: 20111102
  8. DEXAMETHASONE [Concomitant]
     Dosage: 8 MG, UNK
     Route: 042
     Dates: start: 20111102
  9. EMEND [Concomitant]
     Dosage: 125 MG, UNK
     Route: 048
     Dates: start: 20111214, end: 20120106
  10. DOCETAXEL [Concomitant]
     Dosage: 165 MG, UNK
     Route: 042
     Dates: start: 20120104, end: 20120104
  11. PREVACID [Concomitant]
     Dosage: 30 MG, UNK
     Route: 048
     Dates: start: 20060201
  12. CYCLOPHOSPHAMIDE [Concomitant]
     Dosage: UNK UNK, Q3WK
     Route: 042
     Dates: start: 20111102, end: 20111214
  13. FLUOROURACIL [Concomitant]
     Dosage: UNK UNK, Q3WK
     Route: 042
     Dates: start: 20111102, end: 20111214
  14. IMODIUM [Concomitant]
     Dosage: UNK UNK, PRN
     Route: 048
     Dates: start: 20111221, end: 20120108
  15. MAXERAN [Concomitant]
     Dosage: 10 MG, PRN
     Dates: start: 20111221, end: 20120120

REACTIONS (6)
  - DIARRHOEA [None]
  - NAUSEA [None]
  - ARTHRALGIA [None]
  - DEHYDRATION [None]
  - MYALGIA [None]
  - PYREXIA [None]
